FAERS Safety Report 7117851-5 (Version None)
Quarter: 2010Q4

REPORT INFORMATION
  Report Type: 
  Country: None (occurrence: None)
  Receive Date: 20101118
  Receipt Date: 20101118
  Transmission Date: 20110411
  Serious: Yes (Other)
  Sender: FDA-Public Use
  Company Number: None

PATIENT
  Sex: Female
  Weight: 63.5036 kg

DRUGS (2)
  1. LOVAZA [Suspect]
     Indication: BLOOD CHOLESTEROL INCREASED
     Dosage: 1 CAPSULE 4X DAY ORAL
     Route: 048
     Dates: start: 20100901, end: 20101001
  2. NIASPAN [Suspect]
     Indication: BLOOD CHOLESTEROL
     Dosage: 1 TABLET 1 X DAILY ORAL
     Route: 048
     Dates: start: 20101001, end: 20101101

REACTIONS (4)
  - DYSPHONIA [None]
  - ERYTHEMA [None]
  - FATIGUE [None]
  - PRURITUS [None]
